FAERS Safety Report 10663842 (Version 1)
Quarter: 2014Q4

REPORT INFORMATION
  Report Type: Spontaneous
  Country: US (occurrence: US)
  Receive Date: 20141219
  Receipt Date: 20141219
  Transmission Date: 20150529
  Serious: Yes (Hospitalization, Other)
  Sender: FDA-Public Use
  Company Number: US-BRISTOL-MYERS SQUIBB COMPANY-BMS-2014-001263

PATIENT
  Age: 13 Year
  Sex: Male

DRUGS (4)
  1. ABILIFY [Suspect]
     Active Substance: ARIPIPRAZOLE
     Indication: PSYCHOTIC DISORDER
  2. ABILIFY [Suspect]
     Active Substance: ARIPIPRAZOLE
     Indication: AUTISM
  3. ABILIFY [Suspect]
     Active Substance: ARIPIPRAZOLE
     Indication: ASPERGER^S DISORDER
     Dosage: 2.5 MG, QD
     Route: 048
     Dates: start: 201402
  4. ABILIFY [Suspect]
     Active Substance: ARIPIPRAZOLE
     Indication: SCHIZOPHRENIA

REACTIONS (9)
  - Disturbance in attention [Unknown]
  - Hallucination [Unknown]
  - Suicidal ideation [Unknown]
  - Off label use [Unknown]
  - Anger [Unknown]
  - Self injurious behaviour [Unknown]
  - Insomnia [Unknown]
  - Wrong technique in drug usage process [Unknown]
  - Aggression [Unknown]

NARRATIVE: CASE EVENT DATE: 2014
